FAERS Safety Report 9754000 (Version 1)
Quarter: 2013Q4

REPORT INFORMATION
  Report Type: Spontaneous
  Country: AU (occurrence: AU)
  Receive Date: 20131213
  Receipt Date: 20131213
  Transmission Date: 20140711
  Serious: Yes (Other)
  Sender: FDA-Public Use
  Company Number: AU-ABBVIE-13P-008-1175882-00

PATIENT
  Sex: Male

DRUGS (2)
  1. LUCRIN DEPOT [Suspect]
     Indication: PRODUCT USED FOR UNKNOWN INDICATION
     Dates: start: 20131107
  2. BLOOD PRESSURE TABLETS [Concomitant]
     Indication: BLOOD PRESSURE

REACTIONS (15)
  - Lung abscess [Unknown]
  - Aspiration [Unknown]
  - Prostate cancer [Unknown]
  - Chest pain [Unknown]
  - Insomnia [Unknown]
  - Asthenia [Unknown]
  - Feeling abnormal [Unknown]
  - Feeling abnormal [Unknown]
  - Depression [Unknown]
  - Prostate cancer [Unknown]
  - Abnormal dreams [Unknown]
  - Nightmare [Unknown]
  - Fatigue [Unknown]
  - Feeling abnormal [Unknown]
  - Muscular weakness [Recovered/Resolved]
